FAERS Safety Report 9110437 (Version 1)
Quarter: 2013Q1

REPORT INFORMATION
  Report Type: Report from Study
  Country: US (occurrence: US)
  Receive Date: 20130219
  Receipt Date: 20130219
  Transmission Date: 20140127
  Serious: Yes (Other)
  Sender: FDA-Public Use
  Company Number: US-BRACCO-007411

PATIENT
  Age: 75 Year
  Sex: Male

DRUGS (11)
  1. ASPIRIN [Concomitant]
     Dates: start: 20100125
  2. IOPAMIDOL [Suspect]
     Indication: ARTERIOGRAM CORONARY
     Dosage: TOTAL OF 200 ML ADMINISTERED BETWEEN 15:18 AND 15:52 PM.
     Dates: start: 20120116, end: 20120116
  3. IOPAMIDOL [Suspect]
     Indication: PERCUTANEOUS CORONARY INTERVENTION
     Dosage: TOTAL OF 200 ML ADMINISTERED BETWEEN 15:18 AND 15:52 PM.
     Dates: start: 20120116, end: 20120116
  4. CARVEDILOL [Concomitant]
     Dates: start: 20110126
  5. CRESTOR [Concomitant]
     Dates: start: 20110126
  6. FLOMAX [Concomitant]
     Dates: start: 20110213
  7. IODIXANOL [Suspect]
     Indication: ARTERIOGRAM CORONARY
     Dosage: TOTAL OF 200 ML ADMINISTERED BETWEEN 15:18 AND 15:52 PM.
     Dates: start: 20120116, end: 20120116
  8. IODIXANOL [Suspect]
     Indication: PERCUTANEOUS CORONARY INTERVENTION
     Dosage: TOTAL OF 200 ML ADMINISTERED BETWEEN 15:18 AND 15:52 PM.
     Dates: start: 20120116, end: 20120116
  9. GLUCOTROL [Concomitant]
     Dates: start: 20110126
  10. LISINOPRIL [Concomitant]
     Dates: start: 20110126
  11. PLAVIX [Concomitant]
     Dates: start: 20110126

REACTIONS (1)
  - Ventricular fibrillation [Recovered/Resolved]
